FAERS Safety Report 16860309 (Version 6)
Quarter: 2020Q1

REPORT INFORMATION
  Report Type: Report from Study
  Country: AU (occurrence: AU)
  Receive Date: 20190927
  Receipt Date: 20200123
  Transmission Date: 20200409
  Serious: Yes (Hospitalization, Other)
  Sender: FDA-Public Use
  Company Number: AU-SECURA BIO, INC.-2019AU009853

PATIENT

DRUGS (8)
  1. LBH589 [Suspect]
     Active Substance: PANOBINOSTAT
     Dosage: 8 MG/M2
     Route: 048
     Dates: start: 20190906, end: 20190911
  2. LBH589 [Suspect]
     Active Substance: PANOBINOSTAT
     Dosage: 6 MG/M2
     Route: 048
     Dates: start: 20191004, end: 20191031
  3. LBH589 [Suspect]
     Active Substance: PANOBINOSTAT
     Dosage: 2 MG/M2
     Route: 048
     Dates: start: 20191129
  4. LBH589 [Suspect]
     Active Substance: PANOBINOSTAT
     Indication: ATYPICAL TERATOID/RHABDOID TUMOUR OF CNS
     Dosage: 10 MG/M2
     Route: 048
     Dates: start: 20190614, end: 20190808
  5. PANADOL [Concomitant]
     Active Substance: ACETAMINOPHEN
     Indication: PRODUCT USED FOR UNKNOWN INDICATION
     Dosage: UNK
     Dates: start: 20190617
  6. LBH589 [Suspect]
     Active Substance: PANOBINOSTAT
     Dosage: 4 MG/M2
     Route: 048
     Dates: start: 20191109, end: 20191115
  7. BACTRIM [Concomitant]
     Active Substance: SULFAMETHOXAZOLE\TRIMETHOPRIM
     Indication: PRODUCT USED FOR UNKNOWN INDICATION
     Dosage: UNK
     Dates: start: 20180527
  8. ONDANSETRON [Concomitant]
     Active Substance: ONDANSETRON
     Indication: PRODUCT USED FOR UNKNOWN INDICATION
     Dosage: UNK
     Dates: start: 201812

REACTIONS (4)
  - Pyrexia [Recovered/Resolved]
  - Thrombocytopenia [Recovered/Resolved]
  - Febrile neutropenia [Recovered/Resolved]
  - Influenza [Recovered/Resolved]

NARRATIVE: CASE EVENT DATE: 20190911
